FAERS Safety Report 4978491-7 (Version None)
Quarter: 2006Q2

REPORT INFORMATION
  Report Type: 
  Country: None (occurrence: None)
  Receive Date: 20060420
  Receipt Date: 20060410
  Transmission Date: 20061013
  Serious: Yes (Hospitalization, Other)
  Sender: FDA-Public Use
  Company Number: FR-ABBOTT-06P-056-0330410-00

PATIENT
  Sex: Male
  Weight: 54 kg

DRUGS (11)
  1. KALETRA [Suspect]
     Indication: HIV INFECTION
     Route: 048
     Dates: start: 20030321
  2. LAMIVUDINE + ZIDOVUDINE [Concomitant]
     Indication: DRUG USE FOR UNKNOWN INDICATION
     Route: 048
     Dates: start: 20030321, end: 20050829
  3. LAMIVUDINE [Concomitant]
     Indication: DRUG USE FOR UNKNOWN INDICATION
     Route: 048
     Dates: start: 20050830
  4. TENOFOVIR [Concomitant]
     Indication: DRUG USE FOR UNKNOWN INDICATION
     Route: 048
     Dates: start: 20050830
  5. ONDANSETRON [Concomitant]
     Indication: DRUG USE FOR UNKNOWN INDICATION
     Route: 048
     Dates: start: 20051116
  6. DOXORUBICIN HCL [Concomitant]
     Indication: CHEMOTHERAPY
     Route: 042
     Dates: start: 20051130
  7. BLEOMYCIN [Concomitant]
     Indication: CHEMOTHERAPY
     Route: 042
     Dates: start: 20051130
  8. DACARBAZINE [Concomitant]
     Indication: CHEMOTHERAPY
     Route: 042
     Dates: start: 20051130
  9. VINBLASTINE SULFATE [Concomitant]
     Indication: CHEMOTHERAPY
     Route: 042
     Dates: start: 20051130
  10. METHYLPREDNISOLONE [Concomitant]
     Indication: DRUG USE FOR UNKNOWN INDICATION
     Dates: start: 20051130
  11. DEXCHLORPHENIRAMINE [Concomitant]
     Indication: DRUG USE FOR UNKNOWN INDICATION
     Route: 048
     Dates: start: 20051130

REACTIONS (6)
  - ANOREXIA [None]
  - HODGKIN'S DISEASE [None]
  - LEUKOPENIA [None]
  - LYMPHADENOPATHY [None]
  - LYMPHADENOPATHY MEDIASTINAL [None]
  - UNEVALUABLE EVENT [None]
